FAERS Safety Report 17681694 (Version 2)
Quarter: 2020Q3

REPORT INFORMATION
  Report Type: Report from Study
  Country: AU (occurrence: AU)
  Receive Date: 20200417
  Receipt Date: 20200806
  Transmission Date: 20201102
  Serious: Yes (Other)
  Sender: FDA-Public Use
  Company Number: AU-REGENERON PHARMACEUTICALS, INC.-2020-32263

PATIENT

DRUGS (2)
  1. EYLEA [Suspect]
     Active Substance: AFLIBERCEPT
     Indication: DIABETIC RETINAL OEDEMA
     Dosage: BILATERALE INJECTIONS EVERY 5?6 WEEKS FOR MORE THAN ONE YEAR
     Route: 031
  2. EYLEA [Suspect]
     Active Substance: AFLIBERCEPT
     Dosage: UNK
     Route: 031

REACTIONS (6)
  - Eye haemorrhage [Unknown]
  - Weight decreased [Unknown]
  - Vitreous floaters [Unknown]
  - Eye laser surgery [Unknown]
  - Visual impairment [Not Recovered/Not Resolved]
  - Blood glucose fluctuation [Unknown]
